FAERS Safety Report 12855990 (Version 1)
Quarter: 2016Q4

REPORT INFORMATION
  Report Type: Spontaneous
  Country: US (occurrence: US)
  Receive Date: 20161018
  Receipt Date: 20161018
  Transmission Date: 20170207
  Serious: Yes (Hospitalization, Other)
  Sender: FDA-Public Use
  Company Number: US-ROCHE-1843107

PATIENT
  Sex: Female

DRUGS (1)
  1. XELODA [Suspect]
     Active Substance: CAPECITABINE
     Indication: NEOPLASM
     Dosage: ON 7 DAYS AND THEN OFF FOR 7 DAYS. BY MOUTH
     Route: 048
     Dates: start: 20160728

REACTIONS (2)
  - Fall [Unknown]
  - Hip fracture [Unknown]
